FAERS Safety Report 24983655 (Version 1)
Quarter: 2025Q1

REPORT INFORMATION
  Report Type: Spontaneous
  Country: JP (occurrence: JP)
  Receive Date: 20250219
  Receipt Date: 20250219
  Transmission Date: 20250409
  Serious: Yes (Life-Threatening)
  Sender: GLAND PHARMA LTD
  Company Number: JP-GLANDPHARMA-JP-2025GLNLIT00248

PATIENT

DRUGS (3)
  1. CISPLATIN [Suspect]
     Active Substance: CISPLATIN
     Indication: Squamous cell carcinoma of head and neck
     Route: 065
  2. FLUOROURACIL [Suspect]
     Active Substance: FLUOROURACIL
     Indication: Squamous cell carcinoma of head and neck
     Route: 065
  3. DOCETAXEL [Concomitant]
     Active Substance: DOCETAXEL
     Indication: Squamous cell carcinoma of head and neck
     Route: 065

REACTIONS (2)
  - Hyponatraemia [Unknown]
  - Product use in unapproved indication [Unknown]
